FAERS Safety Report 11501607 (Version 1)
Quarter: 2015Q3

REPORT INFORMATION
  Report Type: Spontaneous
  Country: US (occurrence: US)
  Receive Date: 20150914
  Receipt Date: 20150914
  Transmission Date: 20151125
  Serious: Yes (Hospitalization, Other)
  Sender: FDA-Public Use
  Company Number: US-SMITH AND NEPHEW, INC-2015SMT00246

PATIENT
  Sex: Male
  Weight: 145.13 kg

DRUGS (12)
  1. TEGRETOL [Concomitant]
     Active Substance: CARBAMAZEPINE
     Dosage: 400 MG, 2X/DAY
  2. LOSARTAN. [Concomitant]
     Active Substance: LOSARTAN
     Dosage: 100 MG, UNK
  3. REGRANEX [Suspect]
     Active Substance: BECAPLERMIN
     Dosage: UNK, 1X/DAY
     Route: 061
     Dates: start: 20150817
  4. GLUCOPHAGE [Concomitant]
     Active Substance: METFORMIN HYDROCHLORIDE
     Dosage: 500 MG, 1X/DAY
  5. HYDROCHLOROTHIAZIDE. [Concomitant]
     Active Substance: HYDROCHLOROTHIAZIDE
     Dosage: 25 MG, 1X/DAY
  6. EFFEXOR XR [Concomitant]
     Active Substance: VENLAFAXINE HYDROCHLORIDE
     Dosage: 300 MG, UNK
  7. MULTIVITAMIN [Concomitant]
     Active Substance: VITAMINS
  8. REGRANEX [Suspect]
     Active Substance: BECAPLERMIN
     Indication: DIABETIC FOOT
     Dosage: UNK UNK, 1X/DAY
     Route: 061
     Dates: start: 201507, end: 201507
  9. COREG [Concomitant]
     Active Substance: CARVEDILOL
     Dosage: 0.625 MG, 1X/DAY
  10. ATIVAN [Concomitant]
     Active Substance: LORAZEPAM
     Dosage: 2-3 MG, 1X/DAY
  11. BABY ASPIRIN [Concomitant]
     Active Substance: ASPIRIN
     Dosage: 81 MG, 1X/DAY
  12. GLYBURIDE. [Concomitant]
     Active Substance: GLYBURIDE
     Dosage: 1 MG, 2X/DAY

REACTIONS (14)
  - Confusional state [Unknown]
  - Dyslipidaemia [Unknown]
  - Asthenia [Unknown]
  - Staphylococcus test [Recovered/Resolved]
  - Chronic kidney disease [Unknown]
  - Pain [Unknown]
  - Fatigue [Unknown]
  - Osteomyelitis [Unknown]
  - Urinary incontinence [Unknown]
  - Weight decreased [Unknown]
  - Mobility decreased [Unknown]
  - Application site infection [Recovered/Resolved with Sequelae]
  - Sepsis [Recovered/Resolved]
  - Cellulitis [Recovering/Resolving]

NARRATIVE: CASE EVENT DATE: 2015
